FAERS Safety Report 6601302-0 (Version None)
Quarter: 2010Q1

REPORT INFORMATION
  Report Type: 
  Country: None (occurrence: None)
  Receive Date: 20100224
  Receipt Date: 20100224
  Transmission Date: 20100710
  Serious: Yes (Hospitalization)
  Sender: FDA-Public Use
  Company Number: None

PATIENT
  Age: 32 Year
  Sex: Male

DRUGS (1)
  1. OXYCODONE HCL [Suspect]
     Indication: PAIN
     Dosage: 30 MG ONCE PO
     Route: 048
     Dates: start: 20100201, end: 20100201

REACTIONS (3)
  - CONFUSIONAL STATE [None]
  - SEDATION [None]
  - UNRESPONSIVE TO STIMULI [None]
